FAERS Safety Report 6301352-8 (Version None)
Quarter: 2009Q3

REPORT INFORMATION
  Report Type: 
  Country: None (occurrence: None)
  Receive Date: 20090807
  Receipt Date: 20090727
  Transmission Date: 20100115
  Serious: Yes (Other)
  Sender: FDA-Public Use
  Company Number: US-PFIZER INC-2009247647

PATIENT
  Sex: Male
  Weight: 68.038 kg

DRUGS (3)
  1. XALATAN [Suspect]
     Indication: OPEN ANGLE GLAUCOMA
     Dosage: UNK
     Route: 047
  2. TIMOLOL [Concomitant]
     Route: 047
  3. AZOPT [Concomitant]

REACTIONS (6)
  - BLOOD BILIRUBIN INCREASED [None]
  - COUGH [None]
  - EYE OPERATION [None]
  - HYPOAESTHESIA [None]
  - LYME DISEASE [None]
  - TENDON INJURY [None]
